FAERS Safety Report 4584422-4 (Version None)
Quarter: 2005Q1

REPORT INFORMATION
  Report Type: 
  Country: None (occurrence: None)
  Receive Date: 20050125
  Receipt Date: 20041110
  Transmission Date: 20050727
  Serious: No
  Sender: FDA-Public Use
  Company Number: USA041183790

PATIENT
  Age: 74 Year
  Sex: Female
  Weight: 75 kg

DRUGS (3)
  1. FORTEO [Suspect]
     Indication: OSTEOPOROSIS
     Dosage: 20 UG/1 DAY
     Dates: start: 20040325
  2. HUMULIN R [Suspect]
     Indication: DIABETES MELLITUS
     Dates: start: 20000101
  3. LANTUS [Concomitant]

REACTIONS (2)
  - INJECTION SITE IRRITATION [None]
  - MUSCLE SPASMS [None]
